FAERS Safety Report 5792959-5 (Version None)
Quarter: 2008Q2

REPORT INFORMATION
  Report Type: 
  Country: None (occurrence: None)
  Receive Date: 20080626
  Receipt Date: 20080626
  Transmission Date: 20081010
  Serious: Yes (Death)
  Sender: FDA-Public Use
  Company Number: None

PATIENT
  Age: 45 Year
  Sex: Male
  Weight: 136.0791 kg

DRUGS (1)
  1. DIGOXIN [Suspect]
     Indication: CARDIAC FAILURE CONGESTIVE
     Dosage: 1 TAB PER DAY
     Dates: start: 20060101, end: 20080308

REACTIONS (5)
  - CARDIAC FAILURE CONGESTIVE [None]
  - CEREBRAL HAEMORRHAGE [None]
  - ISCHAEMIC CARDIOMYOPATHY [None]
  - PHARMACEUTICAL PRODUCT COMPLAINT [None]
  - VENTRICULAR FIBRILLATION [None]
